FAERS Safety Report 25257585 (Version 1)
Quarter: 2025Q2

REPORT INFORMATION
  Report Type: Spontaneous
  Country: CN (occurrence: CN)
  Receive Date: 20250430
  Receipt Date: 20250430
  Transmission Date: 20250716
  Serious: Yes (Life-Threatening, Other)
  Sender: PURDUE
  Company Number: CN-NAPPMUNDI-GBR-2025-0125268

PATIENT
  Age: 82 Year
  Sex: Male
  Weight: 55 kg

DRUGS (2)
  1. OXYCODONE HYDROCHLORIDE [Suspect]
     Active Substance: OXYCODONE HYDROCHLORIDE
     Indication: Arthralgia
     Dosage: 20 MILLIGRAM, BID
     Route: 048
     Dates: start: 20250418, end: 20250424
  2. PREGABALIN [Suspect]
     Active Substance: PREGABALIN
     Indication: Arthralgia
     Dosage: 75 MILLIGRAM, DAILY EVERY NIGHT
     Route: 048
     Dates: start: 20250418, end: 20250424

REACTIONS (3)
  - Miosis [Recovered/Resolved]
  - Toxicity to various agents [Recovering/Resolving]
  - Labelled drug-drug interaction issue [Unknown]

NARRATIVE: CASE EVENT DATE: 20250401
